FAERS Safety Report 6055340-X (Version None)
Quarter: 2009Q1

REPORT INFORMATION
  Report Type: 
  Country: None (occurrence: None)
  Receive Date: 20090122
  Receipt Date: 20090119
  Transmission Date: 20090719
  Serious: Yes (Disabling)
  Sender: FDA-Public Use
  Company Number: SP02168

PATIENT
  Age: 79 Year
  Sex: Male
  Weight: 65.7716 kg

DRUGS (4)
  1. XIFAXAN [Suspect]
     Indication: COLITIS
     Dosage: 800 MG (400 MG, 2 IN 1 D)
     Dates: start: 20081128, end: 20081130
  2. ASACOL [Concomitant]
  3. FLAGYL [Concomitant]
  4. NUTRITIONAL SUPPLEMENTS [Concomitant]

REACTIONS (12)
  - ABDOMINAL DISCOMFORT [None]
  - ANORECTAL DISCOMFORT [None]
  - CONDITION AGGRAVATED [None]
  - DIARRHOEA [None]
  - ELECTROLYTE IMBALANCE [None]
  - FAECAL INCONTINENCE [None]
  - FLATULENCE [None]
  - MIGRAINE [None]
  - NASAL DISCOMFORT [None]
  - RHINORRHOEA [None]
  - SCOTOMA [None]
  - SNEEZING [None]
